FAERS Safety Report 5515853-3 (Version None)
Quarter: 2007Q4

REPORT INFORMATION
  Report Type: 
  Country: None (occurrence: None)
  Receive Date: 20071114
  Receipt Date: 20071109
  Transmission Date: 20080405
  Serious: Yes (Death, Hospitalization)
  Sender: FDA-Public Use
  Company Number: FR-WYE-G00598107

PATIENT
  Sex: Female

DRUGS (10)
  1. TAZOCILLINE [Suspect]
     Route: 042
     Dates: start: 20070908
  2. L-THYROXIN [Suspect]
     Route: 048
     Dates: start: 20070920
  3. LASIX [Suspect]
     Dosage: 40 MG TOTAL DAILY
     Route: 042
     Dates: start: 20070909, end: 20071006
  4. MOPRAL [Concomitant]
     Dosage: UNKNOWN
  5. TARGOCID [Suspect]
     Dosage: 800 MG TOTAL DAILY
     Route: 042
     Dates: start: 20070908, end: 20070929
  6. AUGMENTIN '500' [Suspect]
     Route: 042
     Dates: start: 20070917, end: 20070921
  7. EPITOMAX [Concomitant]
     Dosage: UNKNOWN
  8. DEPAKENE [Concomitant]
     Dosage: UNKNOWN
  9. KEPPRA [Suspect]
     Dosage: 1000 MG TOTAL DAILY
     Route: 042
     Dates: start: 20070914, end: 20071002
  10. SEROPRAM [Suspect]
     Route: 042
     Dates: start: 20070908, end: 20070930

REACTIONS (5)
  - ANAEMIA [None]
  - DEATH [None]
  - LEUKOPENIA [None]
  - THROMBOCYTOPENIA [None]
  - WHITE BLOOD CELL COUNT INCREASED [None]
